FAERS Safety Report 8824465 (Version 1)
Quarter: 2012Q4

REPORT INFORMATION
  Report Type: 
  Country: US (occurrence: US)
  Receive Date: 20121004
  Receipt Date: 20121004
  Transmission Date: 20130627
  Serious: No
  Sender: FDA-Public Use
  Company Number: US-VIIV HEALTHCARE LIMITED-A0962719A

PATIENT
  Age: 47 Year
  Sex: Male
  Weight: 65.9 kg

DRUGS (4)
  1. SELZENTRY [Suspect]
     Indication: HIV INFECTION
     Dosage: 300MG Twice per day
     Route: 048
  2. ISENTRESS [Suspect]
     Indication: HIV INFECTION
     Dosage: 400MG Twice per day
     Route: 048
  3. TRUVADA [Suspect]
     Indication: HIV INFECTION
     Route: 065
  4. REYATAZ [Suspect]
     Indication: HIV INFECTION
     Route: 065

REACTIONS (5)
  - Gastrointestinal disorder [Not Recovered/Not Resolved]
  - Neuropathy peripheral [Unknown]
  - Skin burning sensation [Unknown]
  - Paraesthesia [Unknown]
  - Arthralgia [Unknown]
